FAERS Safety Report 4911922-7 (Version None)
Quarter: 2006Q1

REPORT INFORMATION
  Report Type: 
  Country: None (occurrence: None)
  Receive Date: 20060213
  Receipt Date: 20060213
  Transmission Date: 20060701
  Serious: Yes (Life-Threatening, Hospitalization)
  Sender: FDA-Public Use
  Company Number: None

PATIENT
  Age: 48 Year
  Sex: Female
  Weight: 80.5 kg

DRUGS (1)
  1. WINRHO D  BAXTER [Suspect]
     Indication: IDIOPATHIC THROMBOCYTOPENIC PURPURA
     Dosage: 50 MCG/KG   ONCE   IV DRIP
     Route: 041
     Dates: start: 20051222, end: 20051222

REACTIONS (3)
  - ANAEMIA [None]
  - COOMBS TEST POSITIVE [None]
  - THERAPEUTIC RESPONSE DECREASED [None]
